FAERS Safety Report 7280317-6 (Version None)
Quarter: 2011Q1

REPORT INFORMATION
  Report Type: 
  Country: None (occurrence: None)
  Receive Date: 20110208
  Receipt Date: 20110117
  Transmission Date: 20110831
  Serious: Yes (Hospitalization)
  Sender: FDA-Public Use
  Company Number: CN-SOLVAY-00211000901

PATIENT
  Age: 20679 Day
  Sex: Male

DRUGS (2)
  1. ACARBOSE [Concomitant]
     Indication: PRODUCT USED FOR UNKNOWN INDICATION
     Dosage: DAILY DOSE:  UNKNOWN
     Route: 065
     Dates: start: 20010301
  2. ACERTIL 4 MG [Suspect]
     Indication: HYPERTENSION
     Dosage: DAILY DOSE: 4 MILLIGRAM(S),
     Route: 048
     Dates: start: 20101208, end: 20101219

REACTIONS (1)
  - CORONARY ARTERY DISEASE [None]
